FAERS Safety Report 9353666 (Version 1)
Quarter: 2013Q2

REPORT INFORMATION
  Report Type: Spontaneous
  Country: US (occurrence: US)
  Receive Date: 20130618
  Receipt Date: 20130618
  Transmission Date: 20140414
  Serious: No
  Sender: FDA-Public Use
  Company Number: US-ROXANE LABORATORIES, INC.-2013-RO-00936RO

PATIENT
  Sex: Female

DRUGS (5)
  1. BUTORPHANOL [Suspect]
     Indication: MIGRAINE
     Route: 045
  2. GLYBURIDE [Concomitant]
     Indication: DIABETES MELLITUS
  3. BYETTA [Concomitant]
     Indication: DIABETES MELLITUS
  4. LISINOPRIL [Concomitant]
     Indication: HYPERTENSION
  5. TORADOL [Concomitant]
     Indication: MIGRAINE

REACTIONS (3)
  - Product taste abnormal [Recovered/Resolved]
  - Drug ineffective [Unknown]
  - Product quality issue [Unknown]
